FAERS Safety Report 23677447 (Version 1)
Quarter: 2024Q1

REPORT INFORMATION
  Report Type: Spontaneous
  Country: US (occurrence: US)
  Receive Date: 20240327
  Receipt Date: 20240327
  Transmission Date: 20240410
  Serious: No
  Sender: FDA-Public Use
  Company Number: US-PERRIGO-23US003201

PATIENT
  Age: 9 Year
  Sex: Female
  Weight: 39.456 kg

DRUGS (1)
  1. FEXOFENADINE HYDROCHLORIDE [Suspect]
     Active Substance: FEXOFENADINE HYDROCHLORIDE
     Indication: Wrong product administered
     Dosage: 180 MG, SINGLE
     Route: 048
     Dates: start: 20230308, end: 20230308

REACTIONS (2)
  - Accidental exposure to product by child [Unknown]
  - Wrong product administered [Unknown]

NARRATIVE: CASE EVENT DATE: 20230308
